FAERS Safety Report 9626899 (Version 2)
Quarter: 2013Q4

REPORT INFORMATION
  Report Type: Report from Study
  Country: JP (occurrence: JP)
  Receive Date: 20131016
  Receipt Date: 20131016
  Transmission Date: 20140711
  Serious: Yes (Hospitalization)
  Sender: FDA-Public Use
  Company Number: JP-TAKEDA-TCI2013A04868

PATIENT
  Age: 59 Year
  Sex: Female
  Weight: 54 kg

DRUGS (5)
  1. LANSOPRAZOLE [Suspect]
     Indication: PROPHYLAXIS AGAINST GASTROINTESTINAL ULCER
     Dosage: 15 MG, QD
     Route: 048
     Dates: start: 20130520, end: 20130807
  2. LANSOPRAZOLE [Suspect]
     Indication: PROPHYLAXIS AGAINST GASTROINTESTINAL ULCER
     Dosage: 15 MG, QD
     Route: 048
     Dates: start: 20130809
  3. LANSOPRAZOLE [Suspect]
     Dosage: 15 MG, QD
     Route: 048
     Dates: start: 20121210, end: 20130519
  4. CELECOX [Concomitant]
     Indication: OSTEOARTHRITIS
     Route: 048
  5. CELECOX [Concomitant]
     Indication: OSTEOARTHRITIS
     Route: 048

REACTIONS (2)
  - Condition aggravated [Recovered/Resolved]
  - Osteoarthritis [Recovered/Resolved]
